FAERS Safety Report 25838990 (Version 1)
Quarter: 2025Q3

REPORT INFORMATION
  Report Type: Spontaneous
  Country: JP (occurrence: JP)
  Receive Date: 20250924
  Receipt Date: 20250924
  Transmission Date: 20251020
  Serious: Yes (Hospitalization)
  Sender: NOVITIUM PHARMA
  Company Number: JP-NOVITIUMPHARMA-2025JPNVP02376

PATIENT
  Age: 62 Year
  Sex: Female

DRUGS (12)
  1. DEXAMETHASONE [Suspect]
     Active Substance: DEXAMETHASONE
     Indication: Plasma cell myeloma
  2. DEXAMETHASONE [Suspect]
     Active Substance: DEXAMETHASONE
  3. DEXAMETHASONE [Suspect]
     Active Substance: DEXAMETHASONE
  4. BORTEZOMIB [Concomitant]
     Active Substance: BORTEZOMIB
  5. CYCLOPHOSPHAMIDE [Concomitant]
     Active Substance: CYCLOPHOSPHAMIDE
  6. LENALIDOMIDE [Concomitant]
     Active Substance: LENALIDOMIDE
  7. IXAZOMIB [Concomitant]
     Active Substance: IXAZOMIB
  8. ISATUXIMAB [Concomitant]
     Active Substance: ISATUXIMAB
  9. ISATUXIMAB [Concomitant]
     Active Substance: ISATUXIMAB
  10. POMALIDOMIDE [Concomitant]
     Active Substance: POMALIDOMIDE
  11. CARFILZOMIB [Concomitant]
     Active Substance: CARFILZOMIB
  12. THROMBOMODULIN ALFA [Concomitant]
     Active Substance: THROMBOMODULIN ALFA
     Indication: Disseminated intravascular coagulation

REACTIONS (3)
  - COVID-19 [Recovered/Resolved]
  - Rash [Recovered/Resolved]
  - Treatment noncompliance [Unknown]
